FAERS Safety Report 9687318 (Version 53)
Quarter: 2017Q4

REPORT INFORMATION
  Report Type: Report from Study
  Country: CA (occurrence: CA)
  Receive Date: 20131114
  Receipt Date: 20171114
  Transmission Date: 20180321
  Serious: Yes (Death, Hospitalization, Other)
  Sender: FDA-Public Use
  Company Number: CA-ROCHE-1227643

PATIENT
  Age: 64 Year
  Sex: Female
  Weight: 88 kg

DRUGS (25)
  1. ACTEMRA [Suspect]
     Active Substance: TOCILIZUMAB
     Dosage: FREQUENCY DAY 1 AND DAY 15
     Route: 042
     Dates: start: 20120427, end: 20121121
  2. RITUXAN [Suspect]
     Active Substance: RITUXIMAB
     Indication: RHEUMATOID ARTHRITIS
     Route: 042
     Dates: start: 20120427, end: 20121121
  3. PREVACID [Concomitant]
     Active Substance: LANSOPRAZOLE
  4. CRESTOR [Concomitant]
     Active Substance: ROSUVASTATIN CALCIUM
  5. PREDNISONE. [Concomitant]
     Active Substance: PREDNISONE
  6. CLONAZEPAM. [Concomitant]
     Active Substance: CLONAZEPAM
  7. AMITRIPTYLINE [Concomitant]
     Active Substance: AMITRIPTYLINE
  8. MORPHINE [Suspect]
     Active Substance: MORPHINE
     Indication: PRODUCT USED FOR UNKNOWN INDICATION
     Route: 065
  9. DIPHENHYDRAMINE HCL [Concomitant]
     Active Substance: DIPHENHYDRAMINE HYDROCHLORIDE
     Indication: PREMEDICATION
     Route: 048
     Dates: start: 20120427, end: 20121121
  10. HYDROCHLOROTHIAZIDE. [Concomitant]
     Active Substance: HYDROCHLOROTHIAZIDE
  11. OXYCOCET [Concomitant]
     Active Substance: ACETAMINOPHEN\OXYCODONE HYDROCHLORIDE
  12. ACTONEL [Concomitant]
     Active Substance: RISEDRONATE SODIUM
  13. ELAVIL [Concomitant]
     Active Substance: AMITRIPTYLINE HYDROCHLORIDE
  14. SPIRIVA [Concomitant]
     Active Substance: TIOTROPIUM BROMIDE MONOHYDRATE
  15. METHYLPREDNISOLONE. [Concomitant]
     Active Substance: METHYLPREDNISOLONE
     Route: 042
     Dates: start: 20120427, end: 20121121
  16. DILTIAZEM. [Concomitant]
     Active Substance: DILTIAZEM
  17. ACETAMINOPHEN. [Concomitant]
     Active Substance: ACETAMINOPHEN
     Indication: PREMEDICATION
     Route: 048
     Dates: start: 20120427, end: 20121121
  18. APO-METOPROLOL [Concomitant]
     Active Substance: METOPROLOL
  19. VENLAFAXINE ER [Concomitant]
     Active Substance: VENLAFAXINE HYDROCHLORIDE
  20. LASIX [Concomitant]
     Active Substance: FUROSEMIDE
     Route: 065
  21. ACTEMRA [Suspect]
     Active Substance: TOCILIZUMAB
     Indication: RHEUMATOID ARTHRITIS
     Route: 042
     Dates: start: 20130906
  22. WELLBUTRIN [Concomitant]
     Active Substance: BUPROPION HYDROCHLORIDE
     Route: 065
  23. APO-LANSOPRAZOLE [Concomitant]
     Active Substance: LANSOPRAZOLE
  24. SALBUTAMOL [Concomitant]
     Active Substance: ALBUTEROL
  25. APO-SALVENT [Concomitant]
     Active Substance: ALBUTEROL
     Route: 065

REACTIONS (57)
  - Drug ineffective [Unknown]
  - Rib fracture [Unknown]
  - Foot fracture [Unknown]
  - Palpitations [Unknown]
  - Fall [Unknown]
  - Skin infection [Unknown]
  - Malaise [Unknown]
  - Arthralgia [Not Recovered/Not Resolved]
  - Peripheral swelling [Not Recovered/Not Resolved]
  - Infection [Unknown]
  - Swelling [Unknown]
  - Upper limb fracture [Recovered/Resolved]
  - Dysphagia [Unknown]
  - Pulmonary oedema [Unknown]
  - Headache [Unknown]
  - Heart rate increased [Unknown]
  - Oxygen saturation decreased [Unknown]
  - Death [Fatal]
  - Rib fracture [Unknown]
  - Osteoporosis [Not Recovered/Not Resolved]
  - Vomiting [Unknown]
  - Infusion related reaction [Unknown]
  - Nasopharyngitis [Unknown]
  - Infection [Not Recovered/Not Resolved]
  - Lower respiratory tract infection [Not Recovered/Not Resolved]
  - Abdominal hernia [Not Recovered/Not Resolved]
  - Cardiac failure congestive [Unknown]
  - Oedema peripheral [Unknown]
  - Lymphoedema [Recovering/Resolving]
  - Blood pressure diastolic decreased [Unknown]
  - Respiratory rate increased [Unknown]
  - Blood potassium decreased [Unknown]
  - Musculoskeletal chest pain [Not Recovered/Not Resolved]
  - Spinal fracture [Unknown]
  - Mass [Not Recovered/Not Resolved]
  - Heart rate increased [Unknown]
  - Neoplasm malignant [Not Recovered/Not Resolved]
  - Lower respiratory tract infection [Unknown]
  - Mass [Unknown]
  - Laceration [Recovered/Resolved]
  - Pyrexia [Not Recovered/Not Resolved]
  - Hypotension [Unknown]
  - Wound [Not Recovered/Not Resolved]
  - Dyspnoea [Not Recovered/Not Resolved]
  - Cellulitis [Recovered/Resolved]
  - Pain [Not Recovered/Not Resolved]
  - Malaise [Not Recovered/Not Resolved]
  - Balance disorder [Not Recovered/Not Resolved]
  - Dyspnoea [Unknown]
  - Hallucination [Unknown]
  - Hernia [Unknown]
  - Abscess limb [Not Recovered/Not Resolved]
  - Spinal disorder [Unknown]
  - Rash [Recovered/Resolved]
  - Oxygen saturation decreased [Unknown]
  - Weight increased [Unknown]
  - Head discomfort [Not Recovered/Not Resolved]

NARRATIVE: CASE EVENT DATE: 2013
